FAERS Safety Report 9104358 (Version 2)
Quarter: 2013Q4

REPORT INFORMATION
  Report Type: Spontaneous
  Country: GB (occurrence: GB)
  Receive Date: 20130219
  Receipt Date: 20131003
  Transmission Date: 20140711
  Serious: Yes (Other)
  Sender: FDA-Public Use
  Company Number: GB-GALDERMA-GB13000500

PATIENT
  Age: 38 Year
  Sex: Female
  Weight: 55 kg

DRUGS (6)
  1. METRONIDAZOLE [Suspect]
     Indication: PRODUCT USED FOR UNKNOWN INDICATION
     Dates: start: 20130102, end: 20130103
  2. METRONIDAZOLE [Suspect]
     Dates: start: 20130130
  3. CHAMPIX [Concomitant]
     Dates: start: 20121212
  4. CLINDAMYCIN PHOSPHATE [Concomitant]
     Dates: start: 20130130
  5. CO-AMOXICLAV [Concomitant]
     Dates: start: 20121116, end: 20121123
  6. LEVOTHYROXINE [Concomitant]
     Dates: start: 20121116

REACTIONS (2)
  - Urticaria [Recovering/Resolving]
  - Pruritus [Unknown]
